FAERS Safety Report 8901285 (Version 2)
Quarter: 2012Q4

REPORT INFORMATION
  Report Type: 
  Country: DE (occurrence: DE)
  Receive Date: 20121109
  Receipt Date: 20121212
  Transmission Date: 20130627
  Serious: Yes (Death)
  Sender: FDA-Public Use
  Company Number: DE-B.I. PHARMACEUTICALS,INC./RIDGEFIELD-2012-DE-02647DE

PATIENT
  Age: 79 Year
  Sex: Female
  Weight: 52 kg

DRUGS (5)
  1. PRADAXA [Suspect]
     Indication: PERIPHERAL ARTERIAL OCCLUSIVE DISEASE
     Dosage: 300 mg
     Route: 048
     Dates: start: 20120820
  2. METFORMIN [Suspect]
     Indication: DIABETES MELLITUS
     Dosage: 2000 mg
  3. CLOPIDOGREL [Concomitant]
     Indication: PERIPHERAL ARTERIAL OCCLUSIVE DISEASE
     Dosage: 75 mg
  4. OXYGESIC RET. [Concomitant]
     Indication: ANALGESIC THERAPY
     Dosage: 10 mg
     Dates: start: 20120903, end: 20120904
  5. NOVALGIN TROPFEN [Concomitant]
     Indication: ANALGESIC THERAPY
     Dosage: 120 anz
     Dates: start: 20120902, end: 20120904

REACTIONS (5)
  - Multi-organ failure [Fatal]
  - Hypotension [Fatal]
  - Lactic acidosis [Fatal]
  - Resuscitation [Fatal]
  - Somnolence [Fatal]
